FAERS Safety Report 14679369 (Version 2)
Quarter: 2018Q3

REPORT INFORMATION
  Report Type: Spontaneous
  Country: US (occurrence: US)
  Receive Date: 20180326
  Receipt Date: 20180711
  Transmission Date: 20181010
  Serious: No
  Sender: FDA-Public Use
  Company Number: US-PFIZER INC-2018122946

PATIENT
  Age: 83 Year
  Sex: Female

DRUGS (3)
  1. EXEMESTANE. [Concomitant]
     Active Substance: EXEMESTANE
     Dosage: UNK
  2. IBRANCE [Suspect]
     Active Substance: PALBOCICLIB
     Indication: BREAST CANCER FEMALE
     Dosage: 125 MG, CYCLIC, (EVERY DAY FOR 21 DAYS ON, 7 DAYS OFF)
     Route: 048
     Dates: start: 201803
  3. IBRANCE [Suspect]
     Active Substance: PALBOCICLIB
     Dosage: 125 MG, CYCLIC, (EVERY DAY FOR 21 DAYS ON, 7 DAYS OFF)
     Route: 048

REACTIONS (1)
  - Fatigue [Recovered/Resolved]
